FAERS Safety Report 8576171-2 (Version None)
Quarter: 2012Q3

REPORT INFORMATION
  Report Type: 
  Country: None (occurrence: None)
  Receive Date: 20120807
  Receipt Date: 20120801
  Transmission Date: 20120928
  Serious: Yes (Hospitalization, Other)
  Sender: FDA-Public Use
  Company Number: US-PFIZER INC-2012187615

PATIENT
  Age: 57 Year
  Sex: Female
  Weight: 77.098 kg

DRUGS (5)
  1. VICODIN HP [Suspect]
     Indication: RHEUMATOID ARTHRITIS
     Dosage: UNK
  2. PRILOSEC [Concomitant]
     Indication: GASTROOESOPHAGEAL REFLUX DISEASE
     Dosage: 20 MG, DAILY
  3. LYRICA [Suspect]
     Dosage: 225 MG, 2X/DAY
     Route: 048
  4. XANAX [Concomitant]
     Indication: CHEST PAIN
     Dosage: UNK, AS NEEDED
  5. LYRICA [Suspect]
     Indication: FIBROMYALGIA
     Dosage: UNK
     Route: 048

REACTIONS (5)
  - WEIGHT INCREASED [None]
  - CHOLELITHIASIS [None]
  - CARPAL TUNNEL SYNDROME [None]
  - FLUID RETENTION [None]
  - DRUG INEFFECTIVE [None]
